FAERS Safety Report 22707830 (Version 2)
Quarter: 2024Q2

REPORT INFORMATION
  Report Type: Report from Study
  Country: DE (occurrence: DE)
  Receive Date: 20230714
  Receipt Date: 20240614
  Transmission Date: 20240716
  Serious: Yes (Hospitalization)
  Sender: FDA-Public Use
  Company Number: DE-ABBVIE-5325243

PATIENT
  Sex: Female

DRUGS (2)
  1. RINVOQ [Suspect]
     Active Substance: UPADACITINIB
     Indication: Rheumatoid arthritis
     Route: 048
     Dates: start: 20230708
  2. RINVOQ [Suspect]
     Active Substance: UPADACITINIB
     Indication: Rheumatoid arthritis
     Route: 048
     Dates: start: 202209, end: 202301

REACTIONS (3)
  - Breast abscess [Recovering/Resolving]
  - Pleural effusion [Not Recovered/Not Resolved]
  - Rheumatic disorder [Not Recovered/Not Resolved]

NARRATIVE: CASE EVENT DATE: 20230101
